FAERS Safety Report 9943882 (Version 1)
Quarter: 2014Q1

REPORT INFORMATION
  Report Type: Spontaneous
  Country: DK (occurrence: GB)
  Receive Date: 20140303
  Receipt Date: 20140303
  Transmission Date: 20141002
  Serious: Yes (Hospitalization)
  Sender: FDA-Public Use
  Company Number: GB-FRI-1000054647

PATIENT
  Age: 69 Year
  Sex: Female
  Weight: 78 kg

DRUGS (6)
  1. CITALOPRAM [Suspect]
     Indication: SEASONAL AFFECTIVE DISORDER
     Dosage: 20 MG
     Route: 048
     Dates: start: 20140127, end: 20140128
  2. ATORVASTATIN [Concomitant]
  3. BISOPROLOL FUMARATE [Concomitant]
  4. GAVISCON ADVANCE [Concomitant]
  5. OLMESARTAN MEDOXOMIL [Concomitant]
  6. OMEPRAZOLE [Concomitant]

REACTIONS (5)
  - Chest pain [Recovering/Resolving]
  - Hypertension [Recovering/Resolving]
  - Hot flush [Recovering/Resolving]
  - Feeling abnormal [Not Recovered/Not Resolved]
  - Malaise [Unknown]
